FAERS Safety Report 4804159-3 (Version None)
Quarter: 2005Q4

REPORT INFORMATION
  Report Type: 
  Country: None (occurrence: None)
  Receive Date: 20051014
  Receipt Date: 20051007
  Transmission Date: 20060501
  Serious: Yes (Death, Other)
  Sender: FDA-Public Use
  Company Number: KII-2005-0019020

PATIENT
  Age: 43 Year
  Sex: Female

DRUGS (5)
  1. OXYCODONE HCL [Suspect]
  2. DOXEPIN HCL [Suspect]
  3. DIPHENHYDRAMINE HCL [Suspect]
  4. CARISOPRODOL [Suspect]
  5. FLUOXETINE [Suspect]

REACTIONS (9)
  - ACCIDENTAL DEATH [None]
  - BRAIN OEDEMA [None]
  - CEREBRAL CYST [None]
  - CEREBRAL VENTRICLE DILATATION [None]
  - HEADACHE [None]
  - MULTI-ORGAN DISORDER [None]
  - MULTIPLE DRUG OVERDOSE [None]
  - PULMONARY CONGESTION [None]
  - PULMONARY OEDEMA [None]
